FAERS Safety Report 6434306-1 (Version None)
Quarter: 2009Q4

REPORT INFORMATION
  Report Type: 
  Country: None (occurrence: None)
  Receive Date: 20091110
  Receipt Date: 20091102
  Transmission Date: 20100525
  Serious: Yes (Hospitalization, Other)
  Sender: FDA-Public Use
  Company Number: US-ASTRAZENECA-2009SE08301

PATIENT
  Age: 21929 Day
  Sex: Female

DRUGS (1)
  1. TAMOXIFEN CITRATE [Suspect]
     Indication: BREAST CANCER
     Route: 048
     Dates: start: 20081128, end: 20090817

REACTIONS (3)
  - ENDOMETRIAL HYPERTROPHY [None]
  - POLYP [None]
  - VAGINAL HAEMORRHAGE [None]
